FAERS Safety Report 25949379 (Version 1)
Quarter: 2025Q4

REPORT INFORMATION
  Report Type: Spontaneous
  Country: US (occurrence: US)
  Receive Date: 20251022
  Receipt Date: 20251022
  Transmission Date: 20260117
  Serious: Yes (Hospitalization, Other)
  Sender: RECKITT BENCKISER
  Company Number: US-INDIVIOR UK LIMITED-INDV-178028-2025

PATIENT
  Age: 50 Year
  Sex: Female

DRUGS (3)
  1. BUPRENORPHINE [Suspect]
     Active Substance: BUPRENORPHINE
     Indication: Product used for unknown indication
     Dosage: UNK
     Route: 065
  2. BUPRENORPHINE [Suspect]
     Active Substance: BUPRENORPHINE
     Dosage: 2 MILLIGRAM, QD
     Route: 065
  3. BUPRENORPHINE [Suspect]
     Active Substance: BUPRENORPHINE
     Dosage: 8 MILLIGRAM, QD
     Route: 065

REACTIONS (6)
  - Seizure [Unknown]
  - Electrocardiogram QT prolonged [Recovered/Resolved]
  - Myocardial ischaemia [Unknown]
  - Drug withdrawal syndrome [Recovered/Resolved]
  - Electrolyte imbalance [Recovered/Resolved]
  - Drug dependence [Recovered/Resolved]
